FAERS Safety Report 22201353 (Version 2)
Quarter: 2023Q2

REPORT INFORMATION
  Report Type: Spontaneous
  Country: US (occurrence: US)
  Receive Date: 20230412
  Receipt Date: 20230428
  Transmission Date: 20230722
  Serious: Yes (Other)
  Sender: FDA-Public Use
  Company Number: US-BRISTOL-MYERS SQUIBB COMPANY-2023-048532

PATIENT
  Age: 52 Year
  Sex: Female
  Weight: 82.4 kg

DRUGS (2)
  1. REVLIMID [Suspect]
     Active Substance: LENALIDOMIDE
     Indication: Plasma cell myeloma
     Dosage: DAILY 1-14, THEN 7 DAYS OFF (D1-14 Q 21 DAYS0
     Route: 048
     Dates: start: 20230320
  2. REVLIMID [Suspect]
     Active Substance: LENALIDOMIDE
     Dosage: RESTARTED
     Dates: start: 202304

REACTIONS (3)
  - Rash [Recovered/Resolved]
  - Compression fracture [Not Recovered/Not Resolved]
  - Off label use [Unknown]
